FAERS Safety Report 18830624 (Version 1)
Quarter: 2021Q1

REPORT INFORMATION
  Report Type: Spontaneous
  Country: US (occurrence: US)
  Receive Date: 20210201
  Receipt Date: 20210201
  Transmission Date: 20210419
  Serious: No
  Sender: FDA-Public Use
  Company Number: US-ABBVIE-20K-163-3668728-00

PATIENT

DRUGS (3)
  1. HUMIRA [Suspect]
     Active Substance: ADALIMUMAB
     Indication: ANKYLOSING SPONDYLITIS
     Route: 058
  2. HUMIRA [Suspect]
     Active Substance: ADALIMUMAB
     Indication: ANKYLOSING SPONDYLITIS
     Route: 058
  3. INFLIXIMAB [Suspect]
     Active Substance: INFLIXIMAB
     Indication: ANKYLOSING SPONDYLITIS
     Dosage: EVERY 6?8 WEEKS
     Route: 065
     Dates: start: 2017

REACTIONS (15)
  - Pain [Unknown]
  - Vomiting [Unknown]
  - Alopecia [Unknown]
  - Back pain [Recovering/Resolving]
  - Inflammation [Unknown]
  - Fatigue [Unknown]
  - Gastric disorder [Unknown]
  - Injection site pain [Unknown]
  - Asthenia [Unknown]
  - Immune system disorder [Unknown]
  - Nausea [Unknown]
  - Drug ineffective [Unknown]
  - Weight increased [Unknown]
  - Scar [Unknown]
  - Illness [Unknown]
